FAERS Safety Report 15747070 (Version 1)
Quarter: 2018Q4

REPORT INFORMATION
  Report Type: Spontaneous
  Country: US (occurrence: US)
  Receive Date: 20181220
  Receipt Date: 20181220
  Transmission Date: 20190205
  Serious: Yes (Hospitalization)
  Sender: FDA-Public Use
  Company Number: US-US WORLDMEDS, LLC-USW201812-001884

PATIENT
  Sex: Male

DRUGS (15)
  1. APOKYN [Suspect]
     Active Substance: APOMORPHINE HYDROCHLORIDE
  2. APOKYN [Suspect]
     Active Substance: APOMORPHINE HYDROCHLORIDE
  3. CLONIDINE. [Concomitant]
     Active Substance: CLONIDINE
     Indication: BLOOD PRESSURE INCREASED
  4. RYTARY [Concomitant]
     Active Substance: CARBIDOPA\LEVODOPA
  5. VITAMINS [Concomitant]
     Active Substance: VITAMINS
  6. APOKYN [Suspect]
     Active Substance: APOMORPHINE HYDROCHLORIDE
  7. CARVEDILOL. [Concomitant]
     Active Substance: CARVEDILOL
     Indication: BLOOD PRESSURE INCREASED
  8. APOKYN [Suspect]
     Active Substance: APOMORPHINE HYDROCHLORIDE
     Indication: PARKINSON^S DISEASE
  9. ASPIRIN. [Concomitant]
     Active Substance: ASPIRIN
  10. LOVASTATIN. [Concomitant]
     Active Substance: LOVASTATIN
  11. AMLODIPINE [Concomitant]
     Active Substance: AMLODIPINE BESYLATE
     Indication: BLOOD PRESSURE INCREASED
  12. LOSARTAN. [Concomitant]
     Active Substance: LOSARTAN
  13. SELEGILINE [Concomitant]
     Active Substance: SELEGILINE
  14. FUROSEMIDE. [Concomitant]
     Active Substance: FUROSEMIDE
  15. TAMSULOSIN [Concomitant]
     Active Substance: TAMSULOSIN

REACTIONS (3)
  - Syncope [Unknown]
  - Respiratory arrest [Unknown]
  - Blood pressure fluctuation [Unknown]
